FAERS Safety Report 26083795 (Version 1)
Quarter: 2025Q4

REPORT INFORMATION
  Report Type: Spontaneous
  Country: US (occurrence: US)
  Receive Date: 20251124
  Receipt Date: 20251124
  Transmission Date: 20260118
  Serious: No
  Sender: PFIZER
  Company Number: US-PFIZER INC-PV202300082911

PATIENT
  Age: 80 Year
  Sex: Male

DRUGS (1)
  1. IBRANCE [Suspect]
     Active Substance: PALBOCICLIB
     Indication: Breast cancer metastatic
     Dosage: 75 MG, CYCLIC (ONCE A DAY FOR 21 DAYS ON AND 7 DAY OFF)
     Route: 048

REACTIONS (1)
  - Respiratory disorder [Unknown]
